FAERS Safety Report 22099498 (Version 2)
Quarter: 2023Q1

REPORT INFORMATION
  Report Type: Spontaneous
  Country: US (occurrence: US)
  Receive Date: 20230315
  Receipt Date: 20230324
  Transmission Date: 20230418
  Serious: Yes (Other)
  Sender: FDA-Public Use
  Company Number: US-BRISTOL-MYERS SQUIBB COMPANY-2023-037784

PATIENT
  Age: 46 Year
  Sex: Female
  Weight: 119.4 kg

DRUGS (4)
  1. ELIQUIS [Suspect]
     Active Substance: APIXABAN
     Indication: Product used for unknown indication
     Dosage: UNKNOWN
  2. TREPROSTINIL SODIUM [Suspect]
     Active Substance: TREPROSTINIL SODIUM
     Indication: Pulmonary arterial hypertension
     Dosage: PHARMACY PRE-FILLED WITH 3 ML PER CASSETTE; PUMP RATE OF 34 MCL PER HOUR
     Route: 058
     Dates: start: 20221107
  3. REVATIO [Concomitant]
     Active Substance: SILDENAFIL CITRATE
     Indication: Product used for unknown indication
  4. AMBRISENTAN [Concomitant]
     Active Substance: AMBRISENTAN
     Indication: Product used for unknown indication

REACTIONS (18)
  - Abdominal distension [Unknown]
  - Rectal haemorrhage [Unknown]
  - Melaena [Unknown]
  - Dyspnoea at rest [Unknown]
  - Weight decreased [Unknown]
  - Oedema peripheral [Unknown]
  - Abdominal pain [Unknown]
  - Constipation [Unknown]
  - Nausea [Unknown]
  - Retching [Unknown]
  - Hernia [Unknown]
  - Seborrhoea [Unknown]
  - Infusion site reaction [Unknown]
  - Infusion site pain [Unknown]
  - Gastrointestinal disorder [Unknown]
  - Chest pain [Recovered/Resolved]
  - Palpitations [Recovered/Resolved]
  - Therapy non-responder [Unknown]

NARRATIVE: CASE EVENT DATE: 20230101
